FAERS Safety Report 5378581-3 (Version None)
Quarter: 2007Q3

REPORT INFORMATION
  Report Type: 
  Country: None (occurrence: None)
  Receive Date: 20070702
  Receipt Date: 20070615
  Transmission Date: 20080115
  Serious: Yes (Other)
  Sender: FDA-Public Use
  Company Number: 2007RR-08138

PATIENT
  Age: 73 Year
  Sex: Male

DRUGS (17)
  1. CLARITHROMYCIN [Suspect]
     Indication: LOWER RESPIRATORY TRACT INFECTION
     Dosage: 500 MG, UNK, ORAL
     Route: 048
     Dates: start: 20070527, end: 20070605
  2. CO-AMOXICLAV                   (AMOXICILLIN) UNKNOW [Concomitant]
  3. COMBIVENT [Concomitant]
  4. FUROSEMIDE [Concomitant]
  5. GLICLAZIDE                 (GLICLAZIDE) UNKNOWN [Concomitant]
  6. NYSTATIN [Concomitant]
  7. OMEPRAZOLE [Concomitant]
  8. PREDNISONE             (PREDNISOLONE) UNKNOWN [Concomitant]
  9. ROSIGLITAZONE [Concomitant]
  10. SENNA [Concomitant]
  11. SERETIDE [Concomitant]
  12. SIMVASTATIN [Concomitant]
  13. TAMSULOSIN MR                       (TAMSULOSIN) UNKNOWN [Concomitant]
  14. TOLTERODINE TARTRATE [Concomitant]
  15. VERAPAMIL                             (VERAPAMIL) UNKNOWN [Concomitant]
  16. WARFARIN SODIUM [Concomitant]
  17. ZOLPIEM HEMITARTRATE                 (ZOLPIDEM) [Concomitant]

REACTIONS (2)
  - ABNORMAL BEHAVIOUR [None]
  - MANIA [None]
